FAERS Safety Report 25699433 (Version 1)
Quarter: 2025Q3

REPORT INFORMATION
  Report Type: Spontaneous
  Country: US (occurrence: US)
  Receive Date: 20250819
  Receipt Date: 20250819
  Transmission Date: 20251020
  Serious: Yes (Death, Other)
  Sender: RANBAXY
  Company Number: US-SUN PHARMACEUTICAL INDUSTRIES INC-2025R1-522699

PATIENT
  Age: 63 Year
  Sex: Female

DRUGS (1)
  1. PREDNISONE [Suspect]
     Active Substance: PREDNISONE
     Indication: COVID-19 pneumonia
     Dosage: 40 MILLIGRAM, BID
     Route: 065

REACTIONS (7)
  - Septic shock [Fatal]
  - Acute kidney injury [Fatal]
  - Pancytopenia [Fatal]
  - Gastrointestinal haemorrhage [Fatal]
  - Intestinal pseudo-obstruction [Fatal]
  - Acute respiratory distress syndrome [Fatal]
  - Respiratory arrest [Fatal]
